FAERS Safety Report 9367358 (Version 2)
Quarter: 2013Q3

REPORT INFORMATION
  Report Type: Report from Study
  Country: US (occurrence: US)
  Receive Date: 20130625
  Receipt Date: 20130704
  Transmission Date: 20140515
  Serious: Yes (Hospitalization)
  Sender: FDA-Public Use
  Company Number: US-ELI_LILLY_AND_COMPANY-US201306004342

PATIENT
  Age: 79 Year
  Sex: Female

DRUGS (11)
  1. TERIPARATIDE [Suspect]
     Indication: OSTEOPOROSIS
     Dosage: 20 UG, QD
     Dates: start: 20130601, end: 20130606
  2. WARFARIN [Concomitant]
     Dosage: UNK, QD
  3. CARVEDILOL [Concomitant]
     Dosage: 6.25 MG, BID
  4. CRESTOR [Concomitant]
     Dosage: 20 MG, QD
  5. SYNTHROID [Concomitant]
     Dosage: 0.10 MG, QD
  6. MIDODRINE [Concomitant]
     Dosage: 10 MG, QD
  7. PANTOPRAZOLE [Concomitant]
     Dosage: 40 MG, QD
  8. PHOSLO [Concomitant]
     Dosage: 667 MG, OTHER
  9. NOVOLOG [Concomitant]
     Dosage: 2 U, OTHER
  10. GABAPENTIN [Concomitant]
     Indication: NEUROPATHY PERIPHERAL
     Dosage: 100 MG, PRN
  11. ASPIRIN [Concomitant]
     Dosage: 81 MG, QD

REACTIONS (4)
  - Cystitis [Unknown]
  - Cystitis [Unknown]
  - Hypotension [Unknown]
  - Fluid overload [Unknown]
